FAERS Safety Report 12834798 (Version 1)
Quarter: 2016Q4

REPORT INFORMATION
  Report Type: Spontaneous
  Country: US (occurrence: US)
  Receive Date: 20161010
  Receipt Date: 20161010
  Transmission Date: 20170207
  Serious: No
  Sender: FDA-Public Use
  Company Number: US-PFIZER INC-2016469074

PATIENT
  Sex: Male

DRUGS (1)
  1. TORISEL [Suspect]
     Active Substance: TEMSIROLIMUS

REACTIONS (1)
  - Neoplasm progression [Unknown]
